FAERS Safety Report 5732655-3 (Version None)
Quarter: 2008Q2

REPORT INFORMATION
  Report Type: 
  Country: None (occurrence: None)
  Receive Date: 20080508
  Receipt Date: 20080505
  Transmission Date: 20081010
  Serious: Yes (Other)
  Sender: FDA-Public Use
  Company Number: HQWYE891613JUL06

PATIENT
  Sex: Female

DRUGS (2)
  1. PREMARIN [Suspect]
     Dosage: UNKNOWN, 24 MOS. (2 YEARS)
     Dates: start: 19990101
  2. PROVERA [Suspect]
     Dosage: 2.5 MG

REACTIONS (1)
  - BREAST CANCER [None]
